FAERS Safety Report 5143254-9 (Version None)
Quarter: 2006Q4

REPORT INFORMATION
  Report Type: 
  Country: None (occurrence: None)
  Receive Date: 20061030
  Receipt Date: 20061013
  Transmission Date: 20070319
  Serious: Yes (Other)
  Sender: FDA-Public Use
  Company Number: BR-2006-031260

PATIENT
  Age: 31 Year
  Sex: Female

DRUGS (2)
  1. BETAFERON (INTERFERON BETA - 1B) INJECTION, 250UG [Suspect]
     Indication: MULTIPLE SCLEROSIS
     Dosage: 8 MIU, SUBCUTANEOUS
     Route: 058
     Dates: start: 20060101
  2. OMEPRAZOLE [Concomitant]

REACTIONS (5)
  - GASTRITIS [None]
  - HEMIPLEGIA [None]
  - MENTAL DISORDER [None]
  - RASH ERYTHEMATOUS [None]
  - SINUSITIS [None]
